FAERS Safety Report 14668153 (Version 1)
Quarter: 2018Q1

REPORT INFORMATION
  Report Type: Spontaneous
  Country: US (occurrence: US)
  Receive Date: 20180321
  Receipt Date: 20180321
  Transmission Date: 20180509
  Serious: Yes (Disabling, Other)
  Sender: FDA-Public Use
  Company Number: None

PATIENT
  Age: 45 Week
  Sex: Male
  Weight: 70.65 kg

DRUGS (1)
  1. CIPROFLOXACIN. [Suspect]
     Active Substance: CIPROFLOXACIN
     Indication: INFECTION
     Dosage: ?          QUANTITY:14 TABLET(S);?
     Route: 048
     Dates: start: 20180306, end: 20180313

REACTIONS (5)
  - Dyskinesia [None]
  - Paraesthesia [None]
  - Tremor [None]
  - Insomnia [None]
  - Pain in extremity [None]

NARRATIVE: CASE EVENT DATE: 20180314
